FAERS Safety Report 8918647 (Version 1)
Quarter: 2012Q4

REPORT INFORMATION
  Report Type: 
  Country: US (occurrence: US)
  Receive Date: 20121120
  Receipt Date: 20121120
  Transmission Date: 20130627
  Serious: No
  Sender: FDA-Public Use
  Company Number: US-ASTRAZENECA-2012SE19894

PATIENT
  Sex: Female

DRUGS (1)
  1. NEXIUM [Suspect]
     Indication: NAUSEA
     Route: 048

REACTIONS (3)
  - Aphagia [Unknown]
  - Vomiting [Unknown]
  - Off label use [Unknown]
